FAERS Safety Report 6039693-4 (Version None)
Quarter: 2009Q1

REPORT INFORMATION
  Report Type: 
  Country: None (occurrence: None)
  Receive Date: 20090116
  Receipt Date: 20081002
  Transmission Date: 20090719
  Serious: No
  Sender: FDA-Public Use
  Company Number: US-KINGPHARMUSA00001-K200801159

PATIENT
  Sex: Male

DRUGS (2)
  1. CORGARD [Suspect]
     Dosage: 80 MG, UNK
  2. CORGARD [Suspect]
     Dosage: 160 MG, UNK

REACTIONS (2)
  - DRUG INEFFECTIVE [None]
  - INCORRECT DOSE ADMINISTERED [None]
